FAERS Safety Report 21393782 (Version 1)
Quarter: 2022Q3

REPORT INFORMATION
  Report Type: Report from Study
  Country: NO (occurrence: NO)
  Receive Date: 20220930
  Receipt Date: 20220930
  Transmission Date: 20221027
  Serious: Yes (Other)
  Sender: FDA-Public Use
  Company Number: NO-ABBVIE-4132998

PATIENT
  Age: 60 Year
  Sex: Female

DRUGS (2)
  1. CARBIDOPA\LEVODOPA [Suspect]
     Active Substance: CARBIDOPA\LEVODOPA
     Indication: Parkinson^s disease
     Route: 050
     Dates: start: 20200702
  2. CARBIDOPA\LEVODOPA [Suspect]
     Active Substance: CARBIDOPA\LEVODOPA

REACTIONS (5)
  - Fistula [Unknown]
  - Gastrointestinal pain [Unknown]
  - Coeliac disease [Unknown]
  - Abdominal pain [Unknown]
  - Intestinal perforation [Unknown]

NARRATIVE: CASE EVENT DATE: 20211001
